FAERS Safety Report 20546635 (Version 3)
Quarter: 2022Q2

REPORT INFORMATION
  Report Type: Report from Study
  Country: US (occurrence: US)
  Receive Date: 20220303
  Receipt Date: 20220426
  Transmission Date: 20220720
  Serious: Yes (Death, Life-Threatening, Hospitalization, Other)
  Sender: FDA-Public Use
  Company Number: US-BRISTOL-MYERS SQUIBB COMPANY-BMS-2022-027514

PATIENT
  Age: 77 Year
  Sex: Male
  Weight: 66.8 kg

DRUGS (2)
  1. NIVOLUMAB [Suspect]
     Active Substance: NIVOLUMAB
     Indication: Anal squamous cell carcinoma
     Dosage: 480 MILLIGRAM
     Route: 065
     Dates: start: 20210119, end: 20220112
  2. IPILIMUMAB [Suspect]
     Active Substance: IPILIMUMAB
     Indication: Anal squamous cell carcinoma
     Dosage: 69.4 MILLIGRAM
     Route: 065
     Dates: start: 20210119, end: 20220112

REACTIONS (2)
  - Pneumonitis [Fatal]
  - COVID-19 [Recovered/Resolved]

NARRATIVE: CASE EVENT DATE: 20220123
